FAERS Safety Report 16997654 (Version 1)
Quarter: 2019Q4

REPORT INFORMATION
  Report Type: Spontaneous
  Country: US (occurrence: US)
  Receive Date: 20190925
  Receipt Date: 20190925
  Transmission Date: 20200122
  Serious: No
  Sender: FDA-Public Use
  Company Number: None

PATIENT
  Age: 53 Year
  Sex: Female

DRUGS (1)
  1. PIQRAY [Suspect]
     Active Substance: ALPELISIB
     Dosage: ?          OTHER DOSE:300;?
     Route: 048
     Dates: start: 201908, end: 201909

REACTIONS (2)
  - Arthralgia [None]
  - Peripheral swelling [None]

NARRATIVE: CASE EVENT DATE: 20190925
